FAERS Safety Report 4558539-4 (Version None)
Quarter: 2005Q1

REPORT INFORMATION
  Report Type: 
  Country: None (occurrence: None)
  Receive Date: 20050121
  Receipt Date: 20050112
  Transmission Date: 20050727
  Serious: Yes (Other)
  Sender: FDA-Public Use
  Company Number: PHNU2005DE00528

PATIENT
  Sex: Male

DRUGS (2)
  1. ZOMETA [Suspect]
     Dosage: 4 MG, QMO
     Route: 042
  2. NOVANTRONE [Concomitant]
     Dosage: 20 MG, TIW
     Route: 042

REACTIONS (1)
  - HYPERTRIGLYCERIDAEMIA [None]
